FAERS Safety Report 25381989 (Version 1)
Quarter: 2025Q2

REPORT INFORMATION
  Report Type: Spontaneous
  Country: FR (occurrence: FR)
  Receive Date: 20250531
  Receipt Date: 20250531
  Transmission Date: 20250717
  Serious: Yes (Other)
  Sender: CELLTRION
  Company Number: FR-AMGEN-FRASP2024236005

PATIENT

DRUGS (13)
  1. ADALIMUMAB [Suspect]
     Active Substance: ADALIMUMAB
     Indication: Neurosarcoidosis
     Dosage: 40 MILLIGRAM, Q2WK
     Route: 065
  2. ADALIMUMAB [Suspect]
     Active Substance: ADALIMUMAB
     Dosage: 40 MILLIGRAM, Q2WK
     Route: 065
  3. ADALIMUMAB [Suspect]
     Active Substance: ADALIMUMAB
     Dosage: 40 MILLIGRAM, Q2WK
     Route: 065
  4. ADALIMUMAB [Suspect]
     Active Substance: ADALIMUMAB
     Dosage: 40 MILLIGRAM, Q2WK
     Route: 065
  5. ADALIMUMAB [Suspect]
     Active Substance: ADALIMUMAB
     Dosage: 40 MILLIGRAM, QWK
     Route: 065
  6. METHOTREXATE [Concomitant]
     Active Substance: METHOTREXATE
     Indication: Neurosarcoidosis
  7. METHOTREXATE [Concomitant]
     Active Substance: METHOTREXATE
  8. METHOTREXATE [Concomitant]
     Active Substance: METHOTREXATE
  9. METHOTREXATE [Concomitant]
     Active Substance: METHOTREXATE
  10. METHOTREXATE [Concomitant]
     Active Substance: METHOTREXATE
  11. METHOTREXATE [Concomitant]
     Active Substance: METHOTREXATE
  12. CORTICOSTEROID NOS [Concomitant]
     Active Substance: CORTICOSTEROID NOS
     Indication: Neurosarcoidosis
  13. CORTICOSTEROID NOS [Concomitant]
     Active Substance: CORTICOSTEROID NOS

REACTIONS (3)
  - Neurosarcoidosis [Unknown]
  - Drug ineffective for unapproved indication [Unknown]
  - Off label use [Unknown]
